FAERS Safety Report 18541583 (Version 1)
Quarter: 2020Q4

REPORT INFORMATION
  Report Type: Spontaneous
  Country: US (occurrence: US)
  Receive Date: 20201124
  Receipt Date: 20201124
  Transmission Date: 20210114
  Serious: Yes (Other)
  Sender: FDA-Public Use
  Company Number: US-KALA PHARAMACEUTICALS-2020KLA00048

PATIENT
  Sex: Female

DRUGS (2)
  1. PROLENSA [Suspect]
     Active Substance: BROMFENAC SODIUM
  2. INVELTYS [Suspect]
     Active Substance: LOTEPREDNOL ETABONATE
     Dosage: UNK
     Dates: start: 202011

REACTIONS (1)
  - Blindness [Not Recovered/Not Resolved]
